FAERS Safety Report 5518357-7 (Version None)
Quarter: 2007Q4

REPORT INFORMATION
  Report Type: 
  Country: None (occurrence: None)
  Receive Date: 20071113
  Receipt Date: 20071113
  Transmission Date: 20080405
  Serious: Yes (Other)
  Sender: FDA-Public Use
  Company Number: None

PATIENT
  Sex: Female
  Weight: 76.2043 kg

DRUGS (6)
  1. ZONISAMIDE [Suspect]
     Indication: PARTIAL SEIZURES
     Dosage: 200 MG  BID  PO
     Route: 048
     Dates: start: 20070301, end: 20070401
  2. KEPPRA [Concomitant]
  3. TEGRETOL-XR [Concomitant]
  4. MECLIZINE [Concomitant]
  5. FIORINAL W/CODEINE [Concomitant]
  6. PAROXETINE [Concomitant]

REACTIONS (3)
  - GRAND MAL CONVULSION [None]
  - PHARMACEUTICAL PRODUCT COMPLAINT [None]
  - THERAPEUTIC RESPONSE UNEXPECTED WITH DRUG SUBSTITUTION [None]
